FAERS Safety Report 6583016-9 (Version None)
Quarter: 2010Q1

REPORT INFORMATION
  Report Type: 
  Country: None (occurrence: None)
  Receive Date: 20100216
  Receipt Date: 20100209
  Transmission Date: 20100710
  Serious: Yes (Death, Hospitalization)
  Sender: FDA-Public Use
  Company Number: IN-ROCHE-656558

PATIENT
  Sex: Female

DRUGS (6)
  1. MYCOPHENOLATE MOFETIL [Suspect]
     Indication: SYSTEMIC LUPUS ERYTHEMATOSUS
     Route: 065
  2. BLINDED ABATACEPT [Suspect]
     Indication: SYSTEMIC LUPUS ERYTHEMATOSUS
     Dosage: DOSE BLINDED
     Route: 042
     Dates: start: 20080303
  3. PREDNISONE [Suspect]
     Indication: SYSTEMIC LUPUS ERYTHEMATOSUS
     Route: 065
  4. PREDNISONE [Suspect]
     Dosage: INCREASED TO 25 MG PER DAY AT 0.5 MG/KG TWICE DAILY.
     Route: 065
  5. WYSOLONE [Concomitant]
     Dates: start: 20090623
  6. HYDROXYCHLOROQUINE SULFATE [Concomitant]

REACTIONS (2)
  - HAEMATEMESIS [None]
  - SYSTEMIC LUPUS ERYTHEMATOSUS [None]
